FAERS Safety Report 15348923 (Version 1)
Quarter: 2018Q3

REPORT INFORMATION
  Report Type: Spontaneous
  Country: US (occurrence: US)
  Receive Date: 20180829
  Receipt Date: 20180829
  Transmission Date: 20181010
  Serious: No
  Sender: FDA-Public Use
  Company Number: None

PATIENT
  Weight: 71.55 kg

DRUGS (1)
  1. BALSAGIZIDE [Suspect]
     Active Substance: BALSALAZIDE

REACTIONS (1)
  - Treatment failure [None]
